FAERS Safety Report 8142856-5 (Version None)
Quarter: 2012Q1

REPORT INFORMATION
  Report Type: 
  Country: None (occurrence: None)
  Receive Date: 20120216
  Receipt Date: 20120123
  Transmission Date: 20120608
  Serious: Yes (Other)
  Sender: FDA-Public Use
  Company Number: PHHY2012ES007816

PATIENT
  Age: 49 Year

DRUGS (3)
  1. OXYCODONE HCL [Suspect]
  2. OXCARBAZEPINE [Suspect]
     Indication: PAIN
  3. AMITRIPTYLINE HCL [Suspect]

REACTIONS (3)
  - RESPIRATORY DISTRESS [None]
  - INTERSTITIAL LUNG DISEASE [None]
  - ORGANISING PNEUMONIA [None]
